FAERS Safety Report 22170744 (Version 1)
Quarter: 2023Q2

REPORT INFORMATION
  Report Type: Spontaneous
  Country: US (occurrence: None)
  Receive Date: 20230403
  Receipt Date: 20230403
  Transmission Date: 20230721
  Serious: No
  Sender: FDA-Public Use
  Company Number: None

PATIENT
  Age: 49 Year
  Sex: Female

DRUGS (8)
  1. AMBRISENTAN [Suspect]
     Active Substance: AMBRISENTAN
     Indication: Pulmonary hypertension
     Dosage: FREQUENCY : DAILY;?
     Route: 048
     Dates: start: 20211119
  2. SM Potassium [Concomitant]
  3. HYDROCHLOROTHIAZIDE [Concomitant]
     Active Substance: HYDROCHLOROTHIAZIDE
  4. LOSARTAN [Concomitant]
  5. Atrovastatin [Concomitant]
  6. METOPROLOL [Concomitant]
     Active Substance: METOPROLOL
  7. LASIX [Concomitant]
     Active Substance: FUROSEMIDE
  8. Sidenafil Citrate [Concomitant]

REACTIONS (2)
  - Product use issue [None]
  - Product dose omission issue [None]

NARRATIVE: CASE EVENT DATE: 20230331
